FAERS Safety Report 6226563-1 (Version None)
Quarter: 2009Q2

REPORT INFORMATION
  Report Type: 
  Country: None (occurrence: None)
  Receive Date: 20090610
  Receipt Date: 20090529
  Transmission Date: 20091009
  Serious: Yes (Hospitalization, Other)
  Sender: FDA-Public Use
  Company Number: 61041

PATIENT
  Age: 21 Year
  Sex: Female

DRUGS (1)
  1. KETAMINE HCL [Suspect]

REACTIONS (7)
  - ALANINE AMINOTRANSFERASE INCREASED [None]
  - BILIARY DILATATION [None]
  - BLOOD ALKALINE PHOSPHATASE INCREASED [None]
  - CHOLEDOCHAL CYST [None]
  - DRUG ABUSE [None]
  - GASTRITIS [None]
  - HEPATIC FUNCTION ABNORMAL [None]
